FAERS Safety Report 6129279-5 (Version None)
Quarter: 2009Q1

REPORT INFORMATION
  Report Type: 
  Country: None (occurrence: None)
  Receive Date: 20090324
  Receipt Date: 20090316
  Transmission Date: 20090719
  Serious: Yes (Hospitalization)
  Sender: FDA-Public Use
  Company Number: AU-AMGEN-US336103

PATIENT
  Sex: Female

DRUGS (4)
  1. NEULASTA [Suspect]
     Indication: CHEMOTHERAPY
  2. DOCETAXEL [Concomitant]
  3. DOXORUBICIN HCL [Concomitant]
  4. CYCLOPHOSPHAMIDE [Concomitant]

REACTIONS (2)
  - FEBRILE NEUTROPENIA [None]
  - NEUTROPENIC SEPSIS [None]
